FAERS Safety Report 7125209-8 (Version None)
Quarter: 2010Q4

REPORT INFORMATION
  Report Type: 
  Country: None (occurrence: None)
  Receive Date: 20101129
  Receipt Date: 20101118
  Transmission Date: 20110411
  Serious: Yes (Hospitalization, Other)
  Sender: FDA-Public Use
  Company Number: PHHY2010JP79635

PATIENT
  Age: 68 Year
  Sex: Female

DRUGS (31)
  1. NEORAL [Suspect]
     Indication: RENAL TRANSPLANT
     Dosage: 300 MG
     Route: 048
     Dates: start: 20090830, end: 20090908
  2. NEORAL [Suspect]
     Dosage: 150 MG
     Route: 048
     Dates: start: 20090909, end: 20090909
  3. NEORAL [Suspect]
     Dosage: 300 MG
     Route: 048
     Dates: start: 20090910, end: 20090910
  4. NEORAL [Suspect]
     Dosage: 150 MG
     Route: 048
     Dates: start: 20090911, end: 20090911
  5. NEORAL [Suspect]
     Dosage: 100 MG
     Route: 048
     Dates: start: 20090912, end: 20090913
  6. NEORAL [Suspect]
     Dosage: 150 MG
     Route: 048
     Dates: start: 20090914, end: 20090926
  7. NEORAL [Suspect]
     Dosage: 200 MG
     Route: 048
     Dates: start: 20090927, end: 20090927
  8. NEORAL [Suspect]
     Dosage: 250 MG
     Route: 048
     Dates: start: 20090928, end: 20090930
  9. NEORAL [Suspect]
     Dosage: 200 MG
     Route: 048
     Dates: start: 20091001, end: 20091021
  10. NEORAL [Suspect]
     Dosage: 150 MG
     Route: 048
     Dates: start: 20091022
  11. SANDIMMUNE [Suspect]
     Indication: RENAL TRANSPLANT
     Dosage: 100 MG
     Route: 041
     Dates: start: 20090909, end: 20090909
  12. CELLCEPT [Suspect]
     Indication: RENAL TRANSPLANT
     Dosage: 300 MG
     Route: 048
     Dates: start: 20090813, end: 20090908
  13. CELLCEPT [Suspect]
     Dosage: 500 MG
     Route: 048
     Dates: start: 20090909, end: 20090909
  14. CELLCEPT [Suspect]
     Dosage: 1500 MG
     Route: 048
     Dates: start: 20090910, end: 20091013
  15. CELLCEPT [Suspect]
     Dosage: 1000 MG
     Route: 048
     Dates: start: 20091014, end: 20091206
  16. CELLCEPT [Suspect]
     Dosage: 750 MG
     Route: 048
     Dates: start: 20091207, end: 20091211
  17. CELLCEPT [Suspect]
     Dosage: 500 MG
     Route: 048
     Dates: start: 20091212, end: 20091214
  18. CELLCEPT [Suspect]
     Dosage: 250 MG
     Route: 048
     Dates: start: 20091215, end: 20091216
  19. CELLCEPT [Suspect]
     Dosage: 500 MG
     Route: 048
     Dates: start: 20091218
  20. PREDNISOLONE [Suspect]
     Indication: RENAL TRANSPLANT
     Dosage: 10 MG
     Route: 048
     Dates: start: 20090830, end: 20090901
  21. PREDNISOLONE [Suspect]
     Dosage: 50 MG
     Route: 048
     Dates: start: 20090911, end: 20090912
  22. PREDNISOLONE [Suspect]
     Dosage: 40 MG
     Route: 048
     Dates: start: 20090913, end: 20090915
  23. PREDNISOLONE [Suspect]
     Dosage: 30 MG
     Route: 048
     Dates: start: 20090916, end: 20090918
  24. PREDNISOLONE [Suspect]
     Dosage: 20 MG
     Route: 048
     Dates: start: 20090919, end: 20090925
  25. PREDNISOLONE [Suspect]
     Dosage: 10 MG
     Route: 048
     Dates: start: 20090926, end: 20091029
  26. PREDNISOLONE [Suspect]
     Dosage: 5 MG
     Route: 048
     Dates: start: 20091030
  27. PREDNISOLONE ACETATE [Suspect]
     Dosage: 50 MG
     Route: 042
     Dates: start: 20090910, end: 20090910
  28. SIMULECT [Concomitant]
     Indication: RENAL TRANSPLANT
     Dosage: 20 MG
     Route: 042
     Dates: start: 20090909, end: 20090909
  29. SIMULECT [Concomitant]
     Dosage: 20 MG
     Route: 042
     Dates: start: 20090913, end: 20090913
  30. RITUXAN [Concomitant]
     Dosage: UNK
     Route: 048
     Dates: start: 20090826, end: 20090826
  31. SOL-MELCORT [Concomitant]
     Indication: RENAL TRANSPLANT
     Dosage: UNK
     Route: 042
     Dates: start: 20090909, end: 20090909

REACTIONS (5)
  - HAEMODIALYSIS [None]
  - LYMPHOCELE [None]
  - PNEUMONIA [None]
  - RENAL PELVIS FISTULA [None]
  - SURGERY [None]
